FAERS Safety Report 16129844 (Version 6)
Quarter: 2022Q2

REPORT INFORMATION
  Report Type: Spontaneous
  Country: CA (occurrence: CA)
  Receive Date: 20190328
  Receipt Date: 20220429
  Transmission Date: 20220721
  Serious: Yes (Hospitalization, Other)
  Sender: FDA-Public Use
  Company Number: CA-PURDUE-CAN-2019-0009836

PATIENT
  Age: 91 Year
  Sex: Female

DRUGS (33)
  1. MORPHINE SULFATE [Suspect]
     Active Substance: MORPHINE SULFATE
     Indication: Product used for unknown indication
     Dosage: UNK
     Route: 065
  2. SANDOSTATIN [Suspect]
     Active Substance: OCTREOTIDE ACETATE
     Indication: Acromegaly
     Dosage: 10 MG,1 EVERY 3 WEEKS
     Route: 030
  3. SANDOSTATIN [Suspect]
     Active Substance: OCTREOTIDE ACETATE
     Dosage: 10 MILLIGRAM, MONTHLY
     Route: 030
  4. SANDOSTATIN [Suspect]
     Active Substance: OCTREOTIDE ACETATE
     Dosage: 20 MILLIGRAM, MONTHLY
     Route: 030
  5. SANDOSTATIN [Suspect]
     Active Substance: OCTREOTIDE ACETATE
     Dosage: 10 MILLIGRAM, 1 EVERY 3 WEEKS
     Route: 030
  6. SANDOSTATIN LAR DEPOT [Suspect]
     Active Substance: OCTREOTIDE ACETATE
     Indication: Acromegaly
     Dosage: 10 MG,1 EVERY 3 WEEKS
     Route: 030
  7. SANDOSTATIN LAR DEPOT [Suspect]
     Active Substance: OCTREOTIDE ACETATE
     Dosage: 10 MG, 1EVERY 1 MONTH
     Route: 030
  8. SANDOSTATIN LAR DEPOT [Suspect]
     Active Substance: OCTREOTIDE ACETATE
     Dosage: 20 MG,1EVERY1MONTH
     Route: 030
  9. CANDESARTAN CILEXETIL AND HYDROCHLOROTHIAZIDE [Concomitant]
     Active Substance: CANDESARTAN CILEXETIL\HYDROCHLOROTHIAZIDE
     Indication: Product used for unknown indication
     Dosage: UNK UNK, DAILY
     Route: 065
  10. DUREZOL [Concomitant]
     Active Substance: DIFLUPREDNATE
     Indication: Glaucoma
     Dosage: 1 DF, UNK
     Route: 057
  11. DUREZOL [Concomitant]
     Active Substance: DIFLUPREDNATE
     Dosage: 1 GTT, 1 MONTH
     Route: 057
  12. DUREZOL [Concomitant]
     Active Substance: DIFLUPREDNATE
     Dosage: 1 DF, UNK
     Route: 057
  13. DUREZOL [Concomitant]
     Active Substance: DIFLUPREDNATE
     Dosage: 1 GTT, 1 MONTH
     Route: 057
  14. DUREZOL [Concomitant]
     Active Substance: DIFLUPREDNATE
     Dosage: UNK
     Route: 057
  15. DUREZOL [Concomitant]
     Active Substance: DIFLUPREDNATE
     Dosage: 1 GTT, 1 MONTH
  16. DUREZOL [Concomitant]
     Active Substance: DIFLUPREDNATE
     Dosage: UNK
     Route: 057
  17. HYDROCHLOROTHIAZIDE [Concomitant]
     Active Substance: HYDROCHLOROTHIAZIDE
     Indication: Product used for unknown indication
     Dosage: UNK UNK, DAILY
     Route: 065
  18. ZYMAR [Concomitant]
     Active Substance: GATIFLOXACIN
     Indication: Glaucoma
     Dosage: 1 DF, QID
     Route: 057
  19. ZYMAR [Concomitant]
     Active Substance: GATIFLOXACIN
     Dosage: 1 GTT, 4 EVERY 1DAY
     Route: 057
  20. ZYMAR [Concomitant]
     Active Substance: GATIFLOXACIN
     Dosage: 1 DF, UNK
     Route: 057
  21. ZYMAR [Concomitant]
     Active Substance: GATIFLOXACIN
     Dosage: 1 GTT, 4 EVERY 1DAY
  22. ZYMAR [Concomitant]
     Active Substance: GATIFLOXACIN
     Dosage: 1 DF, UNK
     Route: 057
  23. ZYMAR [Concomitant]
     Active Substance: GATIFLOXACIN
     Dosage: 1 DF, QID
     Route: 057
  24. ZYMAR [Concomitant]
     Active Substance: GATIFLOXACIN
     Dosage: 1 GTT, 4 EVERY 1DAY
     Route: 057
  25. ZYMAR [Concomitant]
     Active Substance: GATIFLOXACIN
     Dosage: 1 DF, UNK
     Route: 057
  26. LANSOPRAZOLE [Concomitant]
     Active Substance: LANSOPRAZOLE
     Indication: Product used for unknown indication
     Dosage: UNK, 1 EVERY 1DAY
     Route: 065
  27. CANDESARTAN CILEXETIL\HYDROCHLOROTHIAZIDE [Concomitant]
     Active Substance: CANDESARTAN CILEXETIL\HYDROCHLOROTHIAZIDE
     Indication: Product used for unknown indication
     Dosage: UNK
     Route: 065
  28. HYDROCHLOROTHIAZIDE [Concomitant]
     Active Substance: HYDROCHLOROTHIAZIDE
     Indication: Product used for unknown indication
     Dosage: UNK
     Route: 065
  29. HYDROCHLOROTHIAZIDE [Concomitant]
     Active Substance: HYDROCHLOROTHIAZIDE
     Indication: Product used for unknown indication
     Dosage: UNK UNK, DAILY
     Route: 065
  30. HYDROCHLOROTHIAZIDE [Concomitant]
     Active Substance: HYDROCHLOROTHIAZIDE
     Dosage: UNK
     Route: 065
  31. LANSOPRAZOLE [Concomitant]
     Active Substance: LANSOPRAZOLE
     Indication: Product used for unknown indication
     Dosage: UNK, 1 EVERY 1DAY
     Route: 065
  32. CANDESARTAN CILEXETIL AND HYDROCHLOROTHIAZIDE [Concomitant]
     Active Substance: CANDESARTAN CILEXETIL\HYDROCHLOROTHIAZIDE
     Indication: Product used for unknown indication
     Dosage: UNK
     Route: 065
  33. CANDESARTAN CILEXETIL AND HYDROCHLOROTHIAZIDE [Concomitant]
     Active Substance: CANDESARTAN CILEXETIL\HYDROCHLOROTHIAZIDE
     Dosage: UNK, DAILY
     Route: 065

REACTIONS (24)
  - Hip fracture [Recovered/Resolved]
  - Fall [Recovered/Resolved]
  - Pneumonia [Recovered/Resolved]
  - Influenza [Recovered/Resolved]
  - Heart rate irregular [Recovered/Resolved]
  - Depression [Recovered/Resolved]
  - Arthralgia [Recovered/Resolved]
  - Blood pressure systolic increased [Recovered/Resolved]
  - Cough [Recovered/Resolved]
  - Inappropriate schedule of product administration [Recovered/Resolved]
  - Bradycardia [Recovered/Resolved]
  - Diarrhoea [Recovered/Resolved]
  - Pain [Recovered/Resolved]
  - Back pain [Recovered/Resolved]
  - Contusion [Recovered/Resolved]
  - Flank pain [Recovered/Resolved]
  - Intervertebral disc degeneration [Recovered/Resolved]
  - Urinary tract infection [Recovered/Resolved]
  - Blood pressure decreased [Recovered/Resolved]
  - Hypotension [Recovered/Resolved]
  - Dizziness [Recovered/Resolved]
  - Malaise [Recovered/Resolved]
  - Rash [Recovered/Resolved]
  - Pulmonary function test [Recovered/Resolved]
